FAERS Safety Report 18120948 (Version 3)
Quarter: 2020Q3

REPORT INFORMATION
  Report Type: Report from Study
  Country: US (occurrence: US)
  Receive Date: 20200806
  Receipt Date: 20200819
  Transmission Date: 20201103
  Serious: Yes (Hospitalization)
  Sender: FDA-Public Use
  Company Number: US-ACTELION-A-US2020-205105

PATIENT
  Age: 59 Year
  Sex: Female
  Weight: 92.52 kg

DRUGS (4)
  1. OPSUMIT [Suspect]
     Active Substance: MACITENTAN
     Indication: PULMONARY ARTERIAL HYPERTENSION
     Dosage: 10 MG, QD
     Route: 048
  2. AMLODIPINE [Concomitant]
     Active Substance: AMLODIPINE BESYLATE
  3. ADEMPAS [Suspect]
     Active Substance: RIOCIGUAT
     Indication: PRODUCT USED FOR UNKNOWN INDICATION
     Dosage: 1 MG
     Route: 065
  4. REMODULIN [Concomitant]
     Active Substance: TREPROSTINIL

REACTIONS (14)
  - Chills [Not Recovered/Not Resolved]
  - Hypotension [Unknown]
  - Pain in extremity [Unknown]
  - Fluid overload [Unknown]
  - Hypoaesthesia [Unknown]
  - Headache [Unknown]
  - Catheter site erythema [Unknown]
  - Dizziness [Unknown]
  - Visual impairment [Unknown]
  - Weight increased [Unknown]
  - Catheter site pruritus [Unknown]
  - Nausea [Unknown]
  - Transient ischaemic attack [Unknown]
  - Paraesthesia [Unknown]

NARRATIVE: CASE EVENT DATE: 202007
